FAERS Safety Report 9869762 (Version 1)
Quarter: 2014Q1

REPORT INFORMATION
  Report Type: Spontaneous
  Country: US (occurrence: US)
  Receive Date: 20140205
  Receipt Date: 20140205
  Transmission Date: 20141002
  Serious: No
  Sender: FDA-Public Use
  Company Number: US-GLAXOSMITHKLINE-A1028453A

PATIENT
  Age: 53 Year
  Sex: Male

DRUGS (3)
  1. ARIXTRA [Suspect]
     Indication: PULMONARY EMBOLISM
     Route: 065
     Dates: start: 201204, end: 201210
  2. ASPIRIN [Concomitant]
  3. LIPITOR [Concomitant]

REACTIONS (2)
  - Influenza [Not Recovered/Not Resolved]
  - Lymphadenopathy [Unknown]
